FAERS Safety Report 6562756-1 (Version None)
Quarter: 2010Q1

REPORT INFORMATION
  Report Type: 
  Country: None (occurrence: None)
  Receive Date: 20100130
  Receipt Date: 20091118
  Transmission Date: 20100710
  Serious: No
  Sender: FDA-Public Use
  Company Number: US-ABBOTT-09P-163-0610140-00

PATIENT
  Sex: Female
  Weight: 108.96 kg

DRUGS (2)
  1. HUMIRA [Suspect]
     Indication: ARTHRITIS
     Route: 058
     Dates: start: 20020101, end: 20091001
  2. NITROFURANTOIN [Suspect]
     Indication: URINARY TRACT INFECTION

REACTIONS (3)
  - DIARRHOEA [None]
  - HYPERHIDROSIS [None]
  - URINARY TRACT INFECTION [None]
